FAERS Safety Report 4930637-2 (Version None)
Quarter: 2006Q1

REPORT INFORMATION
  Report Type: 
  Country: None (occurrence: None)
  Receive Date: 20060302
  Receipt Date: 20060222
  Transmission Date: 20060701
  Serious: Yes (Hospitalization)
  Sender: FDA-Public Use
  Company Number: 2006AP00913

PATIENT
  Age: 35 Year
  Sex: Female

DRUGS (1)
  1. ZOLADEX [Suspect]
     Indication: ENDOMETRIOSIS
     Dosage: TWO DEPOTS GIVEN PRIOR TO WITHDRAWAL
     Route: 058

REACTIONS (2)
  - INJECTION SITE ABSCESS [None]
  - INJECTION SITE CELLULITIS [None]
